FAERS Safety Report 12411001 (Version 1)
Quarter: 2016Q2

REPORT INFORMATION
  Report Type: Spontaneous
  Country: US (occurrence: None)
  Receive Date: 20160526
  Receipt Date: 20160526
  Transmission Date: 20160815
  Serious: Yes (Disabling)
  Sender: FDA-Public Use
  Company Number: None

PATIENT
  Age: 63 Year
  Sex: Female
  Weight: 85.73 kg

DRUGS (6)
  1. ATORVASTATIN 80MG TABLET [Suspect]
     Active Substance: ATORVASTATIN
     Indication: BLOOD CHOLESTEROL INCREASED
     Route: 048
     Dates: start: 20160321, end: 20160406
  2. LASTIX [Concomitant]
  3. LEVOTHROXINE SODIUM [Concomitant]
     Active Substance: LEVOTHYROXINE SODIUM
  4. PENICILLIN [Concomitant]
     Active Substance: PENICILLIN
  5. COREG [Concomitant]
     Active Substance: CARVEDILOL
  6. POTASSIUM [Concomitant]
     Active Substance: POTASSIUM

REACTIONS (4)
  - Anal incontinence [None]
  - Diarrhoea [None]
  - Abdominal pain upper [None]
  - Flatulence [None]
